FAERS Safety Report 5085825-4 (Version None)
Quarter: 2006Q3

REPORT INFORMATION
  Report Type: 
  Country: None (occurrence: None)
  Receive Date: 20060822
  Receipt Date: 20060316
  Transmission Date: 20061208
  Serious: Yes (Other)
  Sender: FDA-Public Use
  Company Number: 2006UW04563

PATIENT
  Age: 79 Year
  Sex: Female

DRUGS (4)
  1. SYMBICORT [Suspect]
     Indication: ASTHMA
     Dosage: 80/4.5 UG BID MAINTENANCE
     Route: 055
     Dates: start: 20060306, end: 20060313
  2. LOVASTATIN [Concomitant]
     Indication: BLOOD CHOLESTEROL
  3. BRICANYL [Concomitant]
     Indication: ASTHMA
     Route: 055
     Dates: end: 20060301
  4. PULMICORT [Concomitant]
     Indication: ASTHMA
     Route: 055
     Dates: end: 20060301

REACTIONS (1)
  - SWELLING FACE [None]
